FAERS Safety Report 5694967-1 (Version None)
Quarter: 2008Q2

REPORT INFORMATION
  Report Type: 
  Country: None (occurrence: None)
  Receive Date: 20080404
  Receipt Date: 20080325
  Transmission Date: 20081010
  Serious: Yes (Hospitalization, Other)
  Sender: FDA-Public Use
  Company Number: US-JNJFOC-20080306406

PATIENT

DRUGS (2)
  1. FENTANYL TRANSDERMAL SYSTEM [Suspect]
     Indication: NEUROPATHY PERIPHERAL
     Route: 062
  2. FENTANYL TRANSDERMAL SYSTEM [Suspect]
     Indication: PAIN
     Route: 062

REACTIONS (9)
  - ATRIAL FIBRILLATION [None]
  - BLOOD URINE PRESENT [None]
  - CONFUSIONAL STATE [None]
  - CRYING [None]
  - DRUG ADMINISTERED AT INAPPROPRIATE SITE [None]
  - DRUG EFFECT INCREASED [None]
  - OEDEMA PERIPHERAL [None]
  - PAIN [None]
  - WRONG TECHNIQUE IN DRUG USAGE PROCESS [None]
